FAERS Safety Report 11827369 (Version 2)
Quarter: 2017Q1

REPORT INFORMATION
  Report Type: Spontaneous
  Country: CL (occurrence: CL)
  Receive Date: 20151211
  Receipt Date: 20170323
  Transmission Date: 20170428
  Serious: Yes (Other)
  Sender: FDA-Public Use
  Company Number: PHHY2015CL160083

PATIENT

DRUGS (1)
  1. SANDOSTATIN LAR DEPOT [Suspect]
     Active Substance: OCTREOTIDE ACETATE
     Indication: EXPOSURE VIA FATHER
     Dosage: FETAL DRUG EXPOSURE VIA FATHER: 20 MG, QMO (2 MONTHLY DOSES)
     Route: 050

REACTIONS (3)
  - Exposure via father [Unknown]
  - Erythema [Unknown]
  - Congenital hearing disorder [Unknown]
